FAERS Safety Report 8271141-6 (Version None)
Quarter: 2012Q2

REPORT INFORMATION
  Report Type: 
  Country: None (occurrence: None)
  Receive Date: 20120410
  Receipt Date: 20120328
  Transmission Date: 20120825
  Serious: Yes (Other)
  Sender: FDA-Public Use
  Company Number: DE-FRI-1000029600

PATIENT
  Age: 76 Year
  Sex: Male
  Weight: 70 kg

DRUGS (9)
  1. THEOPHYLLINE [Concomitant]
     Dates: start: 20061201
  2. BISOPROLOL FUMARATE [Concomitant]
     Dates: start: 20060420
  3. SYMBICORT [Concomitant]
     Dosage: 640/18 MCG
     Dates: start: 20070609
  4. SYNEUDON [Concomitant]
     Dates: start: 20070503
  5. BERODUAL [Concomitant]
     Dates: start: 20070603
  6. ROFLUMILAST [Suspect]
     Indication: CHRONIC OBSTRUCTIVE PULMONARY DISEASE
     Route: 048
     Dates: start: 20111102, end: 20111110
  7. SPIRIVA [Concomitant]
     Dates: start: 20070426
  8. ALLOPURINOL [Concomitant]
     Dates: start: 20101105
  9. OLMESARTAN MEDOXOMIL AND HYDROCHLOROTHIZIDE [Concomitant]
     Dosage: 10/12.5 MCG
     Dates: start: 20060420

REACTIONS (2)
  - RESTLESSNESS [None]
  - TREMOR [None]
